FAERS Safety Report 5300214-2 (Version None)
Quarter: 2007Q2

REPORT INFORMATION
  Report Type: 
  Country: None (occurrence: None)
  Receive Date: 20070411
  Receipt Date: 20070330
  Transmission Date: 20071010
  Serious: No
  Sender: FDA-Public Use
  Company Number: 2007-156614-NL

PATIENT
  Age: 35 Year
  Sex: Male

DRUGS (3)
  1. MIRTAZAPINE [Suspect]
     Dosage: DF
  2. LAMOTRIGINE [Concomitant]
  3. VENLAFAXIINE HCL [Concomitant]

REACTIONS (1)
  - RENAL FAILURE [None]
